FAERS Safety Report 7401711-6 (Version None)
Quarter: 2011Q1

REPORT INFORMATION
  Report Type: 
  Country: None (occurrence: None)
  Receive Date: 20110329
  Receipt Date: 20110323
  Transmission Date: 20110831
  Serious: Yes (Other)
  Sender: FDA-Public Use
  Company Number: CIP10000674

PATIENT
  Age: 55 Year
  Sex: Female
  Weight: 59 kg

DRUGS (2)
  1. FOSAMAX [Suspect]
     Indication: OSTEOPOROSIS
     Dosage: ORAL
     Route: 048
     Dates: start: 19960101, end: 20030101
  2. OPTINATE (RISEDRONATE SODIUM) TABLET, 35MG [Suspect]
     Indication: OSTEOPOROSIS
     Dosage: 35 MG ONCE A WEEK, ORAL
     Route: 048
     Dates: start: 20030101, end: 20110310

REACTIONS (12)
  - BALANCE DISORDER [None]
  - PAIN IN EXTREMITY [None]
  - PRURITUS [None]
  - PATHOLOGICAL FRACTURE [None]
  - GROIN PAIN [None]
  - EYE IRRITATION [None]
  - INFLAMMATION [None]
  - FALL [None]
  - WEIGHT BEARING DIFFICULTY [None]
  - BONE DISORDER [None]
  - FEMUR FRACTURE [None]
  - GAIT DISTURBANCE [None]
